FAERS Safety Report 4525015-4 (Version None)
Quarter: 2004Q4

REPORT INFORMATION
  Report Type: 
  Country: None (occurrence: None)
  Receive Date: 20041117
  Receipt Date: 20031002
  Transmission Date: 20050328
  Serious: Yes (Other)
  Sender: FDA-Public Use
  Company Number: C2003-2658.01

PATIENT
  Age: 38 Year
  Sex: Male

DRUGS (2)
  1. CLOZAPINE [Suspect]
     Indication: SCHIZOPHRENIA
     Dosage: 600MG Q HS, ORAL
     Route: 048
     Dates: start: 19990210, end: 20030927
  2. IBUPROFEN [Concomitant]

REACTIONS (1)
  - LEUKOPENIA [None]
